FAERS Safety Report 6838957-1 (Version None)
Quarter: 2010Q3

REPORT INFORMATION
  Report Type: 
  Country: None (occurrence: None)
  Receive Date: 20100713
  Receipt Date: 20080327
  Transmission Date: 20110219
  Serious: No
  Sender: FDA-Public Use
  Company Number: US-PFIZER INC-2007048336

PATIENT
  Sex: Male
  Weight: 79.5 kg

DRUGS (7)
  1. CHANTIX [Suspect]
     Indication: SMOKING CESSATION THERAPY
     Route: 048
     Dates: start: 20070531
  2. NEURONTIN [Concomitant]
  3. FLEXERIL [Concomitant]
  4. DURAGESIC-100 [Concomitant]
     Route: 062
  5. METHADONE HCL [Concomitant]
  6. HYDROCODONE BITARTRATE [Concomitant]
  7. ALPRAZOLAM [Concomitant]

REACTIONS (3)
  - DRUG INEFFECTIVE [None]
  - INSOMNIA [None]
  - TOBACCO USER [None]
